FAERS Safety Report 7354110-X (Version None)
Quarter: 2011Q1

REPORT INFORMATION
  Report Type: 
  Country: None (occurrence: None)
  Receive Date: 20110315
  Receipt Date: 20110314
  Transmission Date: 20110831
  Serious: Yes (Other)
  Sender: FDA-Public Use
  Company Number: BR-ABBOTT-10P-020-0669024-00

PATIENT
  Sex: Female
  Weight: 57 kg

DRUGS (10)
  1. OMEPRAZOLE [Concomitant]
     Indication: GASTRIC DISORDER
     Route: 048
     Dates: start: 19910101
  2. SYNTHROID [Concomitant]
     Indication: THYROID DISORDER
     Dosage: 25MG, 1/2 CAPSULE PER DAY
     Route: 048
  3. PREDNISONE [Concomitant]
     Indication: RHEUMATOID ARTHRITIS
     Route: 048
     Dates: start: 20010101
  4. METHOTREXATE [Concomitant]
     Indication: RHEUMATOID ARTHRITIS
     Dosage: 2.5MG TOTAL DAILY DOSE, 7 PER WEEK
     Route: 048
     Dates: start: 20010101
  5. OMEPRAZOLE [Concomitant]
     Indication: PROPHYLAXIS
  6. ALENDRONATE SODIUM [Concomitant]
     Indication: OSTEOPOROSIS
     Route: 048
  7. CALCIUM CARBONATE W/VITAMIN D [Concomitant]
     Indication: OSTEOPOROSIS
     Route: 048
     Dates: start: 20050101
  8. HUMIRA [Suspect]
     Indication: RHEUMATOID ARTHRITIS
     Route: 058
  9. RISEDRONATE [Concomitant]
     Indication: OSTEOPOROSIS
     Route: 048
     Dates: start: 20100901
  10. ANCORON [Concomitant]
     Indication: ARRHYTHMIA
     Dosage: 100MG,  1/2 CAPSULE PER DAY
     Route: 048

REACTIONS (13)
  - LOCALISED OEDEMA [None]
  - APPLICATION SITE INFLAMMATION [None]
  - RIB FRACTURE [None]
  - APPLICATION SITE HAEMATOMA [None]
  - DERMATITIS [None]
  - ALOPECIA [None]
  - SINUSITIS [None]
  - SKIN DISCOLOURATION [None]
  - THYROID DISORDER [None]
  - HYPERKERATOSIS [None]
  - PYREXIA [None]
  - OSTEOPOROSIS [None]
  - APPLICATION SITE WARMTH [None]
